FAERS Safety Report 15396491 (Version 1)
Quarter: 2018Q3

REPORT INFORMATION
  Report Type: Report from Study
  Country: BR (occurrence: BR)
  Receive Date: 20180918
  Receipt Date: 20180918
  Transmission Date: 20181010
  Serious: Yes (Disabling, Other)
  Sender: FDA-Public Use
  Company Number: BR-SA-2018SA238888

PATIENT
  Age: 80 Year
  Sex: Female
  Weight: 82 kg

DRUGS (1)
  1. ZOLPIDEM TARTRATE. [Suspect]
     Active Substance: ZOLPIDEM TARTRATE
     Indication: INSOMNIA
     Dosage: 6.25MG 1 TABLET PER NIGHT, HS
     Route: 048
     Dates: start: 2015

REACTIONS (6)
  - Movement disorder [Recovering/Resolving]
  - Infarction [Recovering/Resolving]
  - Bedridden [Recovering/Resolving]
  - Fall [Unknown]
  - Femur fracture [Recovering/Resolving]
  - Product use issue [Unknown]

NARRATIVE: CASE EVENT DATE: 2015
